FAERS Safety Report 7281649-8 (Version None)
Quarter: 2011Q1

REPORT INFORMATION
  Report Type: 
  Country: None (occurrence: None)
  Receive Date: 20110208
  Receipt Date: 20110201
  Transmission Date: 20110831
  Serious: Yes (Death, Hospitalization, Other)
  Sender: FDA-Public Use
  Company Number: US-ELI_LILLY_AND_COMPANY-US201010003994

PATIENT
  Sex: Male
  Weight: 132.43 kg

DRUGS (10)
  1. METOPROLOL TARTRATE [Concomitant]
     Dosage: 200 MG, UNK
     Route: 048
  2. PRILOSEC [Concomitant]
     Dosage: 40 MG, UNK
     Route: 048
  3. VALIUM [Concomitant]
     Dosage: 10 MG, UNK
     Route: 048
     Dates: start: 20101006
  4. LISINOPRIL [Concomitant]
     Dosage: 1 D/F, UNK
  5. ZYPREXA [Suspect]
     Indication: SCHIZOPHRENIA, PARANOID TYPE
     Dosage: 10 MG, EACH EVENING
     Route: 048
     Dates: start: 20020101, end: 20100401
  6. ZYPREXA RELPREVV [Suspect]
     Indication: SCHIZOPHRENIA, PARANOID TYPE
     Dosage: 300 MG, EVERY TWO WEEKS
     Route: 030
     Dates: start: 20101015
  7. LISINOPRIL AND HYDROCHLOROTHIAZIDE [Concomitant]
     Dosage: 20/25 MG, DAILY (1/D)
     Route: 048
  8. ALCOHOL [Concomitant]
  9. ZYPREXA [Suspect]
     Dosage: 10 MG, DAILY (1/D)
     Route: 048
  10. CLONIDINE [Concomitant]
     Dosage: 0.1 MG, 3/D
     Dates: end: 20101021

REACTIONS (7)
  - GASTROINTESTINAL HAEMORRHAGE [None]
  - PSYCHOTIC DISORDER [None]
  - INSOMNIA [None]
  - AGITATION [None]
  - SOMNOLENCE [None]
  - FATIGUE [None]
  - AKATHISIA [None]
